FAERS Safety Report 9159926 (Version 1)
Quarter: 2013Q1

REPORT INFORMATION
  Report Type: Not Available
  Country: GB (occurrence: GB)
  Receive Date: 20130313
  Receipt Date: 20130313
  Transmission Date: 20140127
  Serious: Yes (Other)
  Sender: FDA-Public Use
  Company Number: GB-NAPPMUNDI-GBR-2013-0013401

PATIENT
  Age: 64 Year
  Sex: Male

DRUGS (3)
  1. MORPHINE SULFATE [Suspect]
     Indication: PRODUCT USED FOR UNKNOWN INDICATION
     Dosage: 30 MG, BID
     Route: 048
  2. PREGABALIN [Suspect]
     Indication: SPINAL FRACTURE
     Dosage: 150 MG, BID
     Route: 065
     Dates: start: 201002
  3. PREGABALIN [Suspect]
     Indication: ABSCESS

REACTIONS (3)
  - Diabetes mellitus [Unknown]
  - Neuralgia [Unknown]
  - Anxiety [Unknown]
